FAERS Safety Report 5811793-0 (Version None)
Quarter: 2008Q3

REPORT INFORMATION
  Report Type: 
  Country: None (occurrence: None)
  Receive Date: 20080715
  Receipt Date: 20080715
  Transmission Date: 20090109
  Serious: No
  Sender: FDA-Public Use
  Company Number: None

PATIENT
  Sex: Female

DRUGS (1)
  1. XOLAIR [Suspect]
     Dosage: 150MG EVERY 4 WEEKS SQ
     Route: 058

REACTIONS (3)
  - ASTHMA [None]
  - CONDITION AGGRAVATED [None]
  - URTICARIA [None]
